FAERS Safety Report 15312552 (Version 2)
Quarter: 2018Q3

REPORT INFORMATION
  Report Type: Spontaneous
  Country: US (occurrence: US)
  Receive Date: 20180823
  Receipt Date: 20180907
  Transmission Date: 20181010
  Serious: No
  Sender: FDA-Public Use
  Company Number: US-SA-2018SA233098

PATIENT
  Age: 73 Year
  Sex: Female

DRUGS (1)
  1. AUBAGIO [Suspect]
     Active Substance: TERIFLUNOMIDE
     Indication: MULTIPLE SCLEROSIS
     Dosage: 14 MG, QD
     Route: 048
     Dates: start: 20180717

REACTIONS (7)
  - Hyperhidrosis [Unknown]
  - Rash [Unknown]
  - Acne pustular [Unknown]
  - Pain [Unknown]
  - Headache [Unknown]
  - Personality change [Unknown]
  - Heart rate increased [Unknown]

NARRATIVE: CASE EVENT DATE: 201807
